FAERS Safety Report 15710559 (Version 1)
Quarter: 2018Q4

REPORT INFORMATION
  Report Type: Spontaneous
  Country: US (occurrence: US)
  Receive Date: 20181211
  Receipt Date: 20181211
  Transmission Date: 20190205
  Serious: Yes (Death, Life-Threatening, Hospitalization, Other)
  Sender: FDA-Public Use
  Company Number: US-PFIZER INC-2018510065

PATIENT
  Sex: Female

DRUGS (1)
  1. AMIODARONE HCL [Suspect]
     Active Substance: AMIODARONE HYDROCHLORIDE
     Indication: ATRIAL FIBRILLATION
     Dosage: 200 MG, AS PRESCRIBED
     Route: 048
     Dates: start: 201411

REACTIONS (8)
  - Blindness [Unknown]
  - Oedema [Unknown]
  - Thyroid disorder [Unknown]
  - Pulmonary fibrosis [Fatal]
  - Gait disturbance [Unknown]
  - Dizziness [Unknown]
  - Tremor [Unknown]
  - Respiratory failure [Fatal]

NARRATIVE: CASE EVENT DATE: 201605
